FAERS Safety Report 17460749 (Version 1)
Quarter: 2020Q1

REPORT INFORMATION
  Report Type: Spontaneous
  Country: US (occurrence: US)
  Receive Date: 20200226
  Receipt Date: 20200226
  Transmission Date: 20200409
  Serious: Yes (Hospitalization, Other)
  Sender: FDA-Public Use
  Company Number: US-GLAXOSMITHKLINE-US2020GSK031752

PATIENT
  Sex: Female

DRUGS (6)
  1. PREVACID [Suspect]
     Active Substance: LANSOPRAZOLE
     Indication: PRODUCT USED FOR UNKNOWN INDICATION
     Dosage: UNK
     Route: 065
  2. ZANTAC [Suspect]
     Active Substance: RANITIDINE HYDROCHLORIDE
     Indication: PRODUCT USED FOR UNKNOWN INDICATION
     Dosage: UNK
     Route: 065
  3. OMEPRAZOLE. [Suspect]
     Active Substance: OMEPRAZOLE
     Dosage: 40 MG, BID
     Route: 065
     Dates: start: 20140124
  4. PANTOPRAZOLE [Suspect]
     Active Substance: PANTOPRAZOLE
     Indication: GASTROOESOPHAGEAL REFLUX DISEASE
     Dosage: 40 MG, BID
     Route: 065
     Dates: start: 20090529
  5. RANITIDINE. [Suspect]
     Active Substance: RANITIDINE
     Indication: PRODUCT USED FOR UNKNOWN INDICATION
     Dosage: 300 MG, QD
     Route: 065
     Dates: start: 20180524
  6. OMEPRAZOLE. [Suspect]
     Active Substance: OMEPRAZOLE
     Indication: GASTROOESOPHAGEAL REFLUX DISEASE
     Dosage: 20 MG, BID
     Route: 065
     Dates: start: 20080123, end: 20130102

REACTIONS (30)
  - Superior mesenteric artery syndrome [Unknown]
  - Oesophageal stenosis [Unknown]
  - Dyspepsia [Unknown]
  - Gastric operation [Unknown]
  - Oesophagitis [Unknown]
  - Barrett^s oesophagus [Unknown]
  - Chronic gastritis [Unknown]
  - Omentectomy [Unknown]
  - Gastroenteritis [Unknown]
  - Diverticulum [Unknown]
  - Stomach mass [Unknown]
  - Migraine [Unknown]
  - Gastrooesophageal reflux disease [Unknown]
  - Nerve injury [Unknown]
  - Gastric cancer [Unknown]
  - Adenocarcinoma gastric [Unknown]
  - Gastric ulcer [Unknown]
  - Gastric disorder [Unknown]
  - Irritable bowel syndrome [Unknown]
  - Abdominal pain [Unknown]
  - Gastric cancer stage II [Unknown]
  - Trigeminal neuralgia [Unknown]
  - Abdominal pain upper [Unknown]
  - Lymphadenectomy [Unknown]
  - Abdominal discomfort [Unknown]
  - Gastric bypass [Unknown]
  - Gastroenterostomy [Unknown]
  - Diverticulum intestinal [Unknown]
  - Hiatus hernia [Unknown]
  - Gastrectomy [Unknown]
